FAERS Safety Report 5664128-0 (Version None)
Quarter: 2008Q1

REPORT INFORMATION
  Report Type: 
  Country: None (occurrence: None)
  Receive Date: 20080312
  Receipt Date: 20080304
  Transmission Date: 20080703
  Serious: Yes (Death, Hospitalization)
  Sender: FDA-Public Use
  Company Number: 2007BI010362

PATIENT
  Age: 35 Year
  Sex: Male
  Weight: 73.4827 kg

DRUGS (1)
  1. TYSABRI [Suspect]
     Indication: MULTIPLE SCLEROSIS
     Dosage: 300 MG;QM;IV
     Route: 042
     Dates: start: 20061016, end: 20070403

REACTIONS (6)
  - CEREBRAL ATROPHY [None]
  - CONTUSION [None]
  - FALL [None]
  - HIP FRACTURE [None]
  - SUDDEN DEATH [None]
  - THROMBOSIS [None]
